FAERS Safety Report 6054374-9 (Version None)
Quarter: 2009Q1

REPORT INFORMATION
  Report Type: 
  Country: None (occurrence: None)
  Receive Date: 20090123
  Receipt Date: 20090123
  Transmission Date: 20090719
  Serious: Yes (Hospitalization)
  Sender: FDA-Public Use
  Company Number: None

PATIENT
  Age: 70 Year
  Sex: Male
  Weight: 81 kg

DRUGS (3)
  1. RITUXAN [Suspect]
     Indication: NON-HODGKIN'S LYMPHOMA
     Dosage: 800 MG MONTHLY IV DRIP
     Route: 041
     Dates: start: 20081104, end: 20081229
  2. FLUDARABINE [Concomitant]
  3. RITUXAN [Suspect]

REACTIONS (1)
  - PNEUMONITIS [None]
